FAERS Safety Report 5796803-1 (Version None)
Quarter: 2008Q3

REPORT INFORMATION
  Report Type: 
  Country: None (occurrence: None)
  Receive Date: 20080701
  Receipt Date: 20080626
  Transmission Date: 20090109
  Serious: Yes (Other)
  Sender: FDA-Public Use
  Company Number: US-ASTRAZENECA-2008UW12846

PATIENT
  Age: 74 Year
  Sex: Male
  Weight: 74.8 kg

DRUGS (2)
  1. CRESTOR [Suspect]
     Indication: BLOOD CHOLESTEROL INCREASED
     Route: 048
     Dates: start: 20020601
  2. ASPIRIN [Concomitant]

REACTIONS (4)
  - ARTHRALGIA [None]
  - CORONARY ARTERY BYPASS [None]
  - MOVEMENT DISORDER [None]
  - MUSCULOSKELETAL STIFFNESS [None]
